FAERS Safety Report 8115019-7 (Version None)
Quarter: 2012Q1

REPORT INFORMATION
  Report Type: 
  Country: None (occurrence: None)
  Receive Date: 20120206
  Receipt Date: 20120131
  Transmission Date: 20120608
  Serious: Yes (Other)
  Sender: FDA-Public Use
  Company Number: US-PFIZER INC-2012027893

PATIENT
  Sex: Female

DRUGS (1)
  1. CHANTIX [Suspect]
     Dosage: UNK
     Dates: start: 20090101

REACTIONS (6)
  - SUICIDAL IDEATION [None]
  - PANIC ATTACK [None]
  - AGGRESSION [None]
  - DEPRESSION [None]
  - ANXIETY [None]
  - ABNORMAL DREAMS [None]
